FAERS Safety Report 16185754 (Version 2)
Quarter: 2020Q1

REPORT INFORMATION
  Report Type: Spontaneous
  Country: US (occurrence: US)
  Receive Date: 20190411
  Receipt Date: 20200211
  Transmission Date: 20200409
  Serious: No
  Sender: FDA-Public Use
  Company Number: US-GLAXOSMITHKLINE-US2019GSK055206

PATIENT
  Age: 7 Year
  Sex: Male
  Weight: 20 kg

DRUGS (1)
  1. ACYCLOVIR SUSPENSION FOR INJECTION [Suspect]
     Active Substance: ACYCLOVIR
     Indication: ORAL HERPES
     Dosage: 5 ML, BID
     Route: 048
     Dates: start: 201902

REACTIONS (2)
  - Rash vesicular [Not Recovered/Not Resolved]
  - Blister [Unknown]
